FAERS Safety Report 6720277-7 (Version None)
Quarter: 2010Q2

REPORT INFORMATION
  Report Type: 
  Country: None (occurrence: None)
  Receive Date: 20100511
  Receipt Date: 20100429
  Transmission Date: 20101027
  Serious: Yes (Other)
  Sender: FDA-Public Use
  Company Number: ES-GILEAD-E2B_00000696

PATIENT
  Age: 45 Year
  Sex: Male

DRUGS (7)
  1. AMBRISENTAN [Suspect]
     Indication: PULMONARY HYPERTENSION
     Dosage: 5MG PER DAY
     Route: 048
     Dates: start: 20100216, end: 20100222
  2. AMBRISENTAN [Suspect]
     Dates: start: 20100224
  3. SINTROM [Concomitant]
  4. DIGOXIN [Concomitant]
  5. AMLODIPINO [Concomitant]
  6. SUTRIL [Concomitant]
  7. FOLIC ACID [Concomitant]

REACTIONS (4)
  - ASTHENIA [None]
  - DYSPNOEA [None]
  - FATIGUE [None]
  - MUSCULAR WEAKNESS [None]
